FAERS Safety Report 8102072-X (Version None)
Quarter: 2012Q1

REPORT INFORMATION
  Report Type: 
  Country: None (occurrence: None)
  Receive Date: 20120131
  Receipt Date: 20120127
  Transmission Date: 20120608
  Serious: Yes (Hospitalization)
  Sender: FDA-Public Use
  Company Number: US-MERCK-1107USA03283

PATIENT
  Age: 64 Year
  Sex: Female

DRUGS (6)
  1. VITAMINS (UNSPECIFIED) [Concomitant]
     Route: 065
     Dates: start: 20010101
  2. FOSAMAX [Suspect]
     Indication: OSTEOPENIA
     Route: 048
     Dates: start: 20030801, end: 20080301
  3. FOSAMAX [Suspect]
     Route: 048
     Dates: start: 20080401, end: 20090901
  4. ASCORBIC ACID [Concomitant]
     Route: 065
     Dates: start: 20010101
  5. CALCIUM (UNSPECIFIED) [Concomitant]
     Route: 065
     Dates: start: 20010101
  6. VITAMIN D (UNSPECIFIED) [Concomitant]
     Route: 065
     Dates: start: 20010101

REACTIONS (5)
  - FEMUR FRACTURE [None]
  - ANXIETY [None]
  - ASTHMA [None]
  - DEPRESSION [None]
  - LOW TURNOVER OSTEOPATHY [None]
